FAERS Safety Report 8576032 (Version 2)
Quarter: 2013Q4

REPORT INFORMATION
  Report Type: Spontaneous
  Country: US (occurrence: US)
  Receive Date: 20120523
  Receipt Date: 20131011
  Transmission Date: 20140711
  Serious: Yes (Hospitalization)
  Sender: FDA-Public Use
  Company Number: US-GLAXOSMITHKLINE-A0978473A

PATIENT
  Age: 63 Year
  Sex: Female
  Weight: 84.5 kg

DRUGS (10)
  1. TYKERB [Suspect]
     Indication: BREAST CANCER
     Dosage: 1250MG PER DAY
     Route: 048
  2. ENALAPRIL [Concomitant]
  3. NORVASC [Concomitant]
  4. TOPROL XL [Concomitant]
  5. XALATAN [Concomitant]
  6. ALEVE [Concomitant]
  7. MULTIVITAMIN [Concomitant]
  8. RENVELA [Concomitant]
  9. COLACE [Concomitant]
  10. SENOKOT [Concomitant]

REACTIONS (4)
  - Viral infection [Unknown]
  - Fatigue [Unknown]
  - Increased tendency to bruise [Unknown]
  - Graft complication [Unknown]
